FAERS Safety Report 6139985-4 (Version None)
Quarter: 2009Q1

REPORT INFORMATION
  Report Type: 
  Country: None (occurrence: None)
  Receive Date: 20090331
  Receipt Date: 20090331
  Transmission Date: 20090719
  Serious: Yes (Other)
  Sender: FDA-Public Use
  Company Number: None

PATIENT
  Sex: Female
  Weight: 90.7194 kg

DRUGS (4)
  1. INVEGA [Suspect]
     Indication: DEPRESSION
     Dosage: 3 MG. 1X A DAY
     Dates: start: 20080131, end: 20080314
  2. INVEGA [Suspect]
     Indication: PSYCHOTIC DISORDER
     Dosage: 3 MG. 1X A DAY
     Dates: start: 20080131, end: 20080314
  3. INVEGA [Suspect]
     Indication: SCHIZOAFFECTIVE DISORDER
     Dosage: 3 MG. 1X A DAY
     Dates: start: 20080131, end: 20080314
  4. INVEGA [Suspect]
     Dosage: 6 MG. 1X A DAY
     Dates: start: 20080315, end: 20080624

REACTIONS (7)
  - BLEPHARITIS [None]
  - BLEPHAROSPASM [None]
  - BLINDNESS [None]
  - DRY EYE [None]
  - DYSKINESIA [None]
  - DYSTONIA [None]
  - EXCESSIVE EYE BLINKING [None]
